FAERS Safety Report 13553601 (Version 1)
Quarter: 2017Q2

REPORT INFORMATION
  Report Type: Spontaneous
  Country: AU (occurrence: AU)
  Receive Date: 20170517
  Receipt Date: 20170517
  Transmission Date: 20170830
  Serious: Yes (Other)
  Sender: FDA-Public Use
  Company Number: AU-STRIDES ARCOLAB LIMITED-2017SP007809

PATIENT

DRUGS (1)
  1. VANCOMYCIN [Suspect]
     Active Substance: VANCOMYCIN
     Indication: BACTERAEMIA
     Dosage: UNKNOWN
     Route: 065

REACTIONS (5)
  - Nodule [Unknown]
  - Panniculitis [Unknown]
  - Skin plaque [Unknown]
  - Eczema [Unknown]
  - Skin mass [Unknown]
